FAERS Safety Report 8920136 (Version 1)
Quarter: 2012Q4

REPORT INFORMATION
  Report Type: 
  Country: US (occurrence: US)
  Receive Date: 20121122
  Receipt Date: 20121122
  Transmission Date: 20130627
  Serious: No
  Sender: FDA-Public Use
  Company Number: US-BAYER-2012-113025

PATIENT
  Sex: Female

DRUGS (2)
  1. STIVARGA [Suspect]
     Indication: METASTATIC COLORECTAL CANCER
     Dosage: 160 mg, UNK
     Dates: start: 201210, end: 20121019
  2. STIVARGA [Suspect]
     Indication: METASTATIC COLORECTAL CANCER
     Dosage: 80 mg, UNK
     Dates: start: 20121023

REACTIONS (1)
  - Palmar-plantar erythrodysaesthesia syndrome [Recovered/Resolved]
